FAERS Safety Report 6527368-4 (Version None)
Quarter: 2009Q4

REPORT INFORMATION
  Report Type: 
  Country: None (occurrence: None)
  Receive Date: 20091222
  Receipt Date: 20090925
  Transmission Date: 20100525
  Serious: No
  Sender: FDA-Public Use
  Company Number: ALL1-2009-02916

PATIENT
  Sex: Male

DRUGS (1)
  1. VYVANSE [Suspect]
     Indication: ATTENTION DEFICIT/HYPERACTIVITY DISORDER
     Dosage: 40; 50; 30; 40 MG, 1X/DAY:QD, ORAL
     Route: 048

REACTIONS (2)
  - IMPULSIVE BEHAVIOUR [None]
  - SOMNOLENCE [None]
